FAERS Safety Report 6152500-4 (Version None)
Quarter: 2009Q2

REPORT INFORMATION
  Report Type: 
  Country: None (occurrence: None)
  Receive Date: 20090413
  Receipt Date: 20090401
  Transmission Date: 20091009
  Serious: Yes (Other)
  Sender: FDA-Public Use
  Company Number: PHHY2009BR12695

PATIENT
  Sex: Female

DRUGS (1)
  1. DIOVAN HCT [Suspect]
     Indication: HYPERTENSION
     Dosage: UNK
     Dates: end: 20090329

REACTIONS (5)
  - DISEASE RECURRENCE [None]
  - DRUG DEPENDENCE [None]
  - HEADACHE [None]
  - MALAISE [None]
  - SENSORY DISTURBANCE [None]
